FAERS Safety Report 13994146 (Version 1)
Quarter: 2017Q3

REPORT INFORMATION
  Report Type: Spontaneous
  Country: US (occurrence: US)
  Receive Date: 20170920
  Receipt Date: 20170920
  Transmission Date: 20171128
  Serious: No
  Sender: FDA-Public Use
  Company Number: US-NEUROCRINE BIOSCIENCES INC.-2017NBI00549

PATIENT
  Sex: Male

DRUGS (7)
  1. DOXEPIN [Concomitant]
     Active Substance: DOXEPIN
     Indication: INSOMNIA
     Dosage: AT BEDTIME
  2. TRAZODONE [Concomitant]
     Active Substance: TRAZODONE HYDROCHLORIDE
  3. INGREZZA [Suspect]
     Active Substance: VALBENAZINE
     Indication: PRODUCT USED FOR UNKNOWN INDICATION
  4. GABAPENTIN. [Concomitant]
     Active Substance: GABAPENTIN
  5. KLONOPIN [Concomitant]
     Active Substance: CLONAZEPAM
  6. ZOLOFT [Concomitant]
     Active Substance: SERTRALINE HYDROCHLORIDE
  7. ADDERALL XR [Concomitant]
     Active Substance: AMPHETAMINE ASPARTATE\AMPHETAMINE SULFATE\DEXTROAMPHETAMINE SACCHARATE\DEXTROAMPHETAMINE SULFATE

REACTIONS (1)
  - Depression [Recovered/Resolved]
